FAERS Safety Report 6294621-1 (Version None)
Quarter: 2009Q3

REPORT INFORMATION
  Report Type: 
  Country: None (occurrence: None)
  Receive Date: 20090803
  Receipt Date: 20090723
  Transmission Date: 20100115
  Serious: Yes (Hospitalization)
  Sender: FDA-Public Use
  Company Number: JP-NOVOPROD-289253

PATIENT
  Age: 74 Year
  Sex: Female

DRUGS (13)
  1. LEVEMIR CHU PENFILL [Suspect]
     Indication: TYPE 2 DIABETES MELLITUS
     Route: 058
     Dates: start: 20090625, end: 20090626
  2. NOVORAPID CHU PENFILL [Suspect]
     Indication: TYPE 2 DIABETES MELLITUS
     Route: 058
     Dates: start: 20090625
  3. NOVORAPID CHU PENFILL [Suspect]
     Dosage: 10 U, QD
     Route: 058
     Dates: start: 20090706
  4. NOVORAPID 30 MIX CHU PENFILL [Suspect]
     Indication: TYPE 2 DIABETES MELLITUS
     Dosage: 20+0+20 U, QD
     Route: 058
     Dates: end: 20090617
  5. NOVORAPID 30 MIX CHU PENFILL [Suspect]
     Dosage: 24-26 U, QD
     Route: 058
     Dates: start: 20090625
  6. HUMULIN R [Concomitant]
     Indication: TYPE 2 DIABETES MELLITUS
     Dosage: 8-12 U, QD
     Route: 058
     Dates: start: 20090618, end: 20090624
  7. HUMULIN N                          /00646001/ [Concomitant]
     Indication: TYPE 2 DIABETES MELLITUS
     Dosage: 6 U, QD
     Route: 058
     Dates: start: 20090618, end: 20090706
  8. HUMULIN N                          /00646001/ [Concomitant]
     Dosage: 10 U, QD
     Route: 058
     Dates: start: 20090701, end: 20090710
  9. BENET [Concomitant]
     Indication: OSTEOPOROSIS
     Dosage: 2.5 MG, QD
     Route: 048
  10. BUFERIN [Concomitant]
     Dosage: 81 MG, QD
     Route: 048
  11. TIZANIDINE HCL [Concomitant]
     Indication: BACK PAIN
     Dosage: 2 MG, QD
     Route: 048
  12. LOXONIN                            /00890701/ [Concomitant]
     Indication: BACK PAIN
     Dosage: 120 MG, QD
     Route: 048
  13. DEPAS [Concomitant]
     Indication: BACK PAIN
     Dosage: 1 MG, QD
     Route: 048

REACTIONS (7)
  - ALANINE AMINOTRANSFERASE INCREASED [None]
  - ASPARTATE AMINOTRANSFERASE INCREASED [None]
  - BLOOD ALKALINE PHOSPHATASE INCREASED [None]
  - BLOOD LACTATE DEHYDROGENASE INCREASED [None]
  - DIABETES MELLITUS INADEQUATE CONTROL [None]
  - GAMMA-GLUTAMYLTRANSFERASE ABNORMAL [None]
  - URINARY TRACT INFECTION [None]
